FAERS Safety Report 9526625 (Version 2)
Quarter: 2014Q2

REPORT INFORMATION
  Report Type: Spontaneous
  Country: IT (occurrence: IT)
  Receive Date: 20130916
  Receipt Date: 20140424
  Transmission Date: 20141212
  Serious: Yes (Other)
  Sender: FDA-Public Use
  Company Number: PHHY2013IT101466

PATIENT
  Sex: Male

DRUGS (4)
  1. ALPRAZOLAM [Suspect]
     Indication: SELF-INJURIOUS IDEATION
     Dosage: 50 MG, ONCE/SINGLE
     Route: 048
     Dates: start: 20130826, end: 20130826
  2. TAVOR (LORAZEPAM) [Suspect]
     Indication: SELF-INJURIOUS IDEATION
     Dosage: 20 MG, ONCE/SINGLE
     Route: 048
     Dates: start: 20130826, end: 20130826
  3. ZYPREXA [Concomitant]
     Dosage: 10 MG, QD
     Route: 048
  4. CIPRALEX [Concomitant]
     Dosage: 1 DF, ONCE/SINGLE

REACTIONS (1)
  - Sopor [Recovering/Resolving]
